FAERS Safety Report 12339791 (Version 2)
Quarter: 2016Q3

REPORT INFORMATION
  Report Type: Spontaneous
  Country: DE (occurrence: DE)
  Receive Date: 20160506
  Receipt Date: 20160708
  Transmission Date: 20161109
  Serious: Yes (Life-Threatening, Hospitalization, Disabling)
  Sender: FDA-Public Use
  Company Number: DE-AMGEN-DEUSP2016055331

PATIENT
  Sex: Male

DRUGS (37)
  1. PEGFILGRASTIM [Suspect]
     Active Substance: PEGFILGRASTIM
     Indication: B-CELL LYMPHOMA
     Dosage: 6 MG, 1 IN 14 D
     Route: 058
     Dates: start: 20151023
  2. PEGFILGRASTIM [Suspect]
     Active Substance: PEGFILGRASTIM
     Dosage: 6 MG, 1 IN 1 D
     Route: 058
     Dates: start: 20151108, end: 20151108
  3. PEGFILGRASTIM [Suspect]
     Active Substance: PEGFILGRASTIM
     Dosage: 6 MG, 1 IN 1 D
     Route: 058
     Dates: start: 20151219, end: 20151219
  4. RITUXIMAB [Suspect]
     Active Substance: RITUXIMAB
     Dosage: 650 MG, 1 IN 1 D
     Route: 042
     Dates: start: 20151216, end: 20151216
  5. VINCRISTINE [Suspect]
     Active Substance: VINCRISTINE
     Dosage: 3.46 MG, 1 IN 1 D
     Route: 042
     Dates: start: 20151217, end: 20151217
  6. PREDNISONE. [Suspect]
     Active Substance: PREDNISONE
     Dosage: 100 MG, 1 IN 1 D
     Route: 048
     Dates: start: 20151217, end: 20151217
  7. SULFAMETHOXAZOLE AND TRIMETHOPRIM [Concomitant]
     Active Substance: SULFAMETHOXAZOLE\TRIMETHOPRIM
     Indication: PROPHYLAXIS
     Dosage: 960 MG, 2 IN 1 WK
     Route: 048
     Dates: start: 20151005
  8. DOXORUBICINE [Suspect]
     Active Substance: DOXORUBICIN
     Dosage: 64 MG, 1 IN 1 D
     Route: 042
     Dates: start: 20151126
  9. ALLOPURINOL. [Concomitant]
     Active Substance: ALLOPURINOL
     Indication: PROPHYLAXIS
     Dosage: 300 MG, 1 IN 1 D
     Route: 048
     Dates: start: 20151005
  10. CALCIUM FOLINATE [Concomitant]
     Active Substance: LEUCOVORIN CALCIUM
     Dosage: UNK UNK, DAILY DOSE 0-1-0-0
  11. RITUXIMAB [Suspect]
     Active Substance: RITUXIMAB
     Indication: B-CELL LYMPHOMA
     Dosage: 375 MG/M2, 1 IN 14 D
     Route: 042
     Dates: start: 20151020, end: 20151020
  12. PEGFILGRASTIM [Suspect]
     Active Substance: PEGFILGRASTIM
     Dosage: 6 MG, 1 IN 1 D
     Route: 058
     Dates: start: 20151130
  13. CYCLOPHOSPHAMIDE. [Suspect]
     Active Substance: CYCLOPHOSPHAMIDE
     Dosage: 980 MG, 1 IN 1 D
     Route: 042
     Dates: start: 20151217, end: 20151217
  14. VINCRISTINE [Suspect]
     Active Substance: VINCRISTINE
     Dosage: 3.4 MG, 1 IN 1 D
     Route: 042
     Dates: start: 20151126
  15. PREDNISONE. [Suspect]
     Active Substance: PREDNISONE
     Dosage: 100 MG, 1 IN 1 D
     Route: 048
     Dates: start: 20151126, end: 20151130
  16. ACICLOVIR [Concomitant]
     Active Substance: ACYCLOVIR
     Indication: PROPHYLAXIS
     Dosage: 1600 (400 MG, 4 IN 1 D)
     Route: 048
     Dates: start: 20151007
  17. HYDROCHLOROTHIAZIDE. [Concomitant]
     Active Substance: HYDROCHLOROTHIAZIDE
     Dosage: 25 MG, UNK
  18. RITUXIMAB [Suspect]
     Active Substance: RITUXIMAB
     Dosage: 660 MG, 1 IN 1 D
     Route: 042
     Dates: start: 20151104, end: 20151104
  19. VINCRISTINE [Suspect]
     Active Substance: VINCRISTINE
     Dosage: 3.46 MG, 1 IN 1 D
     Route: 042
     Dates: start: 20151105
  20. SIMVASTATIN. [Concomitant]
     Active Substance: SIMVASTATIN
     Dosage: 20 MG, 1 IN 1 D
  21. DOXORUBICINE [Suspect]
     Active Substance: DOXORUBICIN
     Indication: B-CELL LYMPHOMA
     Dosage: 50 MG/M2, 1 IN 14 D
     Route: 042
     Dates: start: 20151021, end: 20151021
  22. DOXORUBICINE [Suspect]
     Active Substance: DOXORUBICIN
     Dosage: 88 MG, 1 IN 1 D
     Route: 042
     Dates: start: 20151105, end: 20151105
  23. DOXORUBICINE [Suspect]
     Active Substance: DOXORUBICIN
     Dosage: 64 MG, 1 IN 1 D
     Route: 042
     Dates: start: 20151217, end: 20151217
  24. PREDNISONE. [Suspect]
     Active Substance: PREDNISONE
     Indication: B-CELL LYMPHOMA
     Dosage: 100 MG, 1 IN 14 D
     Route: 048
     Dates: start: 20151021, end: 20151025
  25. AMPHOTERICIN B. [Concomitant]
     Active Substance: AMPHOTERICIN B
     Indication: PROPHYLAXIS
     Dosage: 400 MG (100 MG, 4 IN 1 D)
     Route: 048
     Dates: start: 20151005
  26. PANTOPRAZOL [Concomitant]
     Active Substance: PANTOPRAZOLE SODIUM
     Dosage: 40 MG (20 MG, 2 IN 1 D)
  27. RITUXIMAB [Suspect]
     Active Substance: RITUXIMAB
     Dosage: 640 MG, 1 IN 1 D
     Route: 042
     Dates: start: 20151125
  28. RITUXIMAB [Suspect]
     Active Substance: RITUXIMAB
     Dosage: UNK, 1 IN 14 D
     Route: 042
     Dates: start: 20160121, end: 20160121
  29. CYCLOPHOSPHAMIDE. [Suspect]
     Active Substance: CYCLOPHOSPHAMIDE
     Dosage: 960 MG, 1 IN 1 D
     Route: 042
     Dates: start: 20151126
  30. CYCLOPHOSPHAMIDE. [Suspect]
     Active Substance: CYCLOPHOSPHAMIDE
     Indication: B-CELL LYMPHOMA
     Dosage: 750 MG/M2, 1 IN 14 D
     Route: 042
     Dates: start: 20151021, end: 20151021
  31. CYCLOPHOSPHAMIDE. [Suspect]
     Active Substance: CYCLOPHOSPHAMIDE
     Dosage: 1320 MG, 1 IN 1 D
     Route: 042
     Dates: start: 20151105, end: 20151105
  32. VINCRISTINE [Suspect]
     Active Substance: VINCRISTINE
     Indication: B-CELL LYMPHOMA
     Dosage: 2 MG/M2, 1 IN 14 D
     Route: 042
     Dates: start: 20151021, end: 20151021
  33. PREDNISONE. [Suspect]
     Active Substance: PREDNISONE
     Dosage: 100 MG, 1 IN 1 D
     Route: 048
     Dates: start: 20151104, end: 20151109
  34. ASPIRIN. [Concomitant]
     Active Substance: ASPIRIN
     Dosage: 100 MG, 1 IN 1 D
  35. DOXAZOSIN [Concomitant]
     Active Substance: DOXAZOSIN\DOXAZOSIN MESYLATE
     Dosage: 4 MG, 1 IN 1 D
  36. CIPROFLOXACIN. [Concomitant]
     Active Substance: CIPROFLOXACIN
     Indication: PROPHYLAXIS
     Dosage: FOR 3 DAYS (500 MG, 2 IN 1 D)
     Route: 048
     Dates: start: 20151110, end: 20151112
  37. MOXONIDIN [Concomitant]
     Active Substance: MOXONIDINE
     Dosage: 0.3 MG, 1 IN 1 D

REACTIONS (7)
  - Pneumonia [Recovered/Resolved]
  - Febrile neutropenia [Recovered/Resolved]
  - Circulatory collapse [Recovered/Resolved]
  - Pneumonia [Recovered/Resolved]
  - Pyrexia [Recovered/Resolved]
  - Pyrexia [Recovered/Resolved]
  - Fatigue [Recovered/Resolved]

NARRATIVE: CASE EVENT DATE: 20151028
